FAERS Safety Report 10614866 (Version 1)
Quarter: 2014Q4

REPORT INFORMATION
  Report Type: Spontaneous
  Country: SE (occurrence: SE)
  Receive Date: 20141201
  Receipt Date: 20141201
  Transmission Date: 20150529
  Serious: Yes (Other)
  Sender: FDA-Public Use
  Company Number: SE-BRISTOL-MYERS SQUIBB COMPANY-21645247

PATIENT
  Age: 74 Year
  Sex: Female

DRUGS (4)
  1. SELOKEN [Concomitant]
     Active Substance: METOPROLOL
  2. FORXIGA [Suspect]
     Active Substance: DAPAGLIFLOZIN
     Indication: TYPE 2 DIABETES MELLITUS
     Dosage: FILMDRAGERAD TABLETT
     Route: 048
     Dates: start: 20140924, end: 20141107
  3. GLIBENCLAMIDE [Concomitant]
     Active Substance: GLYBURIDE
  4. SALURES [Concomitant]
     Active Substance: BENDROFLUMETHIAZIDE

REACTIONS (1)
  - Myalgia [Recovered/Resolved]

NARRATIVE: CASE EVENT DATE: 20141030
